FAERS Safety Report 7611569-8 (Version None)
Quarter: 2011Q3

REPORT INFORMATION
  Report Type: 
  Country: None (occurrence: None)
  Receive Date: 20110715
  Receipt Date: 20110707
  Transmission Date: 20111222
  Serious: Yes (Other)
  Sender: FDA-Public Use
  Company Number: BR-GLAXOSMITHKLINE-A0932081A

PATIENT
  Sex: Male
  Weight: 70 kg

DRUGS (2)
  1. BEROTEC [Concomitant]
     Indication: PRODUCT USED FOR UNKNOWN INDICATION
     Dosage: 5DROP PER DAY
     Route: 065
  2. SERETIDE [Suspect]
     Indication: RESPIRATORY FAILURE
     Route: 055
     Dates: start: 20050101

REACTIONS (3)
  - PRODUCT QUALITY ISSUE [None]
  - RESPIRATORY FAILURE [None]
  - DRUG INEFFECTIVE [None]
